FAERS Safety Report 4364966-0 (Version None)
Quarter: 2004Q2

REPORT INFORMATION
  Report Type: 
  Country: None (occurrence: None)
  Receive Date: 20040521
  Receipt Date: 20040429
  Transmission Date: 20050107
  Serious: Yes (Life-Threatening)
  Sender: FDA-Public Use
  Company Number: AU_040507675

PATIENT
  Age: 73 Year
  Sex: Female

DRUGS (2)
  1. ZYPREXA [Suspect]
     Indication: AGITATION
     Dosage: IM
     Route: 030
     Dates: start: 20040101
  2. ZYPREXA [Suspect]
     Indication: DEMENTIA
     Dosage: IM
     Route: 030
     Dates: start: 20040101

REACTIONS (1)
  - ELECTROCARDIOGRAM QT PROLONGED [None]
